FAERS Safety Report 9547399 (Version 1)
Quarter: 2013Q3

REPORT INFORMATION
  Report Type: Spontaneous
  Country: IR (occurrence: IR)
  Receive Date: 20130924
  Receipt Date: 20130924
  Transmission Date: 20140515
  Serious: Yes (Hospitalization)
  Sender: FDA-Public Use
  Company Number: PHHY2013IR103580

PATIENT
  Age: 27 Year
  Sex: Female

DRUGS (4)
  1. CITALOPRAM [Suspect]
     Indication: PANIC ATTACK
     Dosage: 20 MG, DAILY
  2. CITALOPRAM [Interacting]
     Dosage: 40 MG, DAILY
  3. RIFAMPIN [Interacting]
     Indication: BRUCELLOSIS
     Dosage: 600 MG, DAILY
  4. DOXYCYCLINE [Concomitant]
     Indication: BRUCELLOSIS
     Dosage: 100 MG, BID

REACTIONS (10)
  - Panic attack [Recovered/Resolved]
  - Drug interaction [Unknown]
  - Dizziness [Recovered/Resolved]
  - Tremor [Recovered/Resolved]
  - Hyperhidrosis [Recovered/Resolved]
  - Nausea [Recovered/Resolved]
  - Vomiting [Recovered/Resolved]
  - Agitation [Recovered/Resolved]
  - Tachycardia [Recovered/Resolved]
  - Fear of death [Recovered/Resolved]
